FAERS Safety Report 18480738 (Version 2)
Quarter: 2020Q4

REPORT INFORMATION
  Report Type: Spontaneous
  Country: US (occurrence: US)
  Receive Date: 20201109
  Receipt Date: 20201113
  Transmission Date: 20210114
  Serious: Yes (Death, Other)
  Sender: FDA-Public Use
  Company Number: US-PFIZER INC-2020430555

PATIENT

DRUGS (3)
  1. SODIUM BICARBONATE. [Suspect]
     Active Substance: SODIUM BICARBONATE
     Indication: HYPOPLASTIC LEFT HEART SYNDROME
     Dosage: UNK
  2. ALPROSTADIL. [Suspect]
     Active Substance: ALPROSTADIL
     Dosage: UNK
  3. DOPAMINE HCL [Suspect]
     Active Substance: DOPAMINE HYDROCHLORIDE
     Indication: HYPOPLASTIC LEFT HEART SYNDROME
     Dosage: UNK

REACTIONS (4)
  - Cardiac arrest neonatal [Fatal]
  - Product use issue [Unknown]
  - Drug ineffective [Fatal]
  - Off label use [Unknown]
